FAERS Safety Report 25551769 (Version 1)
Quarter: 2025Q3

REPORT INFORMATION
  Report Type: Spontaneous
  Country: CO (occurrence: CO)
  Receive Date: 20250714
  Receipt Date: 20250714
  Transmission Date: 20251021
  Serious: Yes (Death, Hospitalization)
  Sender: ROCHE
  Company Number: CO-ROCHE-10000333053

PATIENT
  Age: 49 Year
  Sex: Male

DRUGS (1)
  1. GAZYVA [Suspect]
     Active Substance: OBINUTUZUMAB
     Indication: Chronic myeloid leukaemia
     Dosage: OBINUTUZUMAB IV (INTRAVENOUS) CONCENTRATED SOLUTION FOR INFUSION 1000 MG / 40 ML
     Route: 042

REACTIONS (1)
  - Respiratory arrest [Fatal]

NARRATIVE: CASE EVENT DATE: 20250620
